FAERS Safety Report 22296897 (Version 2)
Quarter: 2023Q2

REPORT INFORMATION
  Report Type: Spontaneous
  Country: IR (occurrence: IR)
  Receive Date: 20230509
  Receipt Date: 20230515
  Transmission Date: 20230721
  Serious: Yes (Hospitalization, Other)
  Sender: FDA-Public Use
  Company Number: IR-ALKEM LABORATORIES LIMITED-IR-ALKEM-2023-04684

PATIENT
  Age: 25 Year
  Sex: Male

DRUGS (5)
  1. LIDOCAINE [Suspect]
     Active Substance: LIDOCAINE
     Indication: Pain
     Dosage: UNK UNK, QD (70 G/10 G) OINTMENT TUBES, OVER-THE-COUNTER
     Route: 061
  2. LIDOCAINE [Suspect]
     Active Substance: LIDOCAINE
     Indication: Pruritus genital
  3. BENZOCAINE [Suspect]
     Active Substance: BENZOCAINE
     Indication: Pain
     Dosage: UNK UNK, QD (60 G/10 G), OVER THE COUNTER
     Route: 061
  4. BENZOCAINE [Suspect]
     Active Substance: BENZOCAINE
     Indication: Pruritus genital
  5. PODOPHYLLUM RESIN [Concomitant]
     Active Substance: PODOPHYLLUM RESIN
     Indication: Anogenital warts
     Dosage: UNK, (OVER THE COUNTER)
     Route: 061

REACTIONS (3)
  - Haemolysis [Recovered/Resolved]
  - Methaemoglobinaemia [Recovered/Resolved]
  - Self-medication [Unknown]
